FAERS Safety Report 4394183-X (Version None)
Quarter: 2004Q3

REPORT INFORMATION
  Report Type: 
  Country: None (occurrence: None)
  Receive Date: 20040706
  Receipt Date: 20030725
  Transmission Date: 20050211
  Serious: No
  Sender: FDA-Public Use
  Company Number: 03071155

PATIENT
  Sex: Female

DRUGS (1)
  1. CLOBETASOL PROPIONATE [Suspect]
     Indication: HERPES VIRUS INFECTION
     Dosage: TOPICAL
     Route: 061
     Dates: start: 20030701, end: 20030724

REACTIONS (4)
  - CONDITION AGGRAVATED [None]
  - DRUG INEFFECTIVE [None]
  - ECZEMA [None]
  - FUNGAL INFECTION [None]
